FAERS Safety Report 4293984-6 (Version None)
Quarter: 2004Q1

REPORT INFORMATION
  Report Type: 
  Country: None (occurrence: None)
  Receive Date: 20040211
  Receipt Date: 20040123
  Transmission Date: 20041129
  Serious: Yes (Death, Hospitalization, Other)
  Sender: FDA-Public Use
  Company Number: JP_031202320

PATIENT
  Age: 55 Year
  Sex: Female
  Weight: 64 kg

DRUGS (8)
  1. ZYPREXA [Suspect]
     Indication: SCHIZOPHRENIA
     Dosage: 5 MG/DAY
     Dates: start: 20030404, end: 20031121
  2. LEVOTHYROXINE SODIUM [Suspect]
  3. LULLAN (PEROSPIRONE HYDROCHLORIDE) [Concomitant]
  4. TASMOLIN (BIPERIDEN) [Concomitant]
  5. ATARAX [Concomitant]
  6. ROHIPNOL (FLUNITRAZEPAM) [Concomitant]
  7. NITRAZEPAM [Concomitant]
  8. PURSENNID (SENNA LEAF) [Concomitant]

REACTIONS (9)
  - CARDIAC FAILURE ACUTE [None]
  - CARDIO-RESPIRATORY ARREST [None]
  - DRUG INEFFECTIVE [None]
  - HYPERTENSION [None]
  - IRRITABILITY [None]
  - LOGORRHOEA [None]
  - MALAISE [None]
  - TREATMENT NONCOMPLIANCE [None]
  - WEIGHT INCREASED [None]
